FAERS Safety Report 9360054 (Version 5)
Quarter: 2013Q3

REPORT INFORMATION
  Report Type: Spontaneous
  Country: GB (occurrence: GB)
  Receive Date: 20130621
  Receipt Date: 20130806
  Transmission Date: 20140515
  Serious: Yes (Life-Threatening, Other)
  Sender: FDA-Public Use
  Company Number: GB-AMGEN-GBRSP2013042692

PATIENT
  Age: 47 Year
  Sex: Female
  Weight: 75.5 kg

DRUGS (21)
  1. ARANESP [Suspect]
     Indication: NEPHROGENIC ANAEMIA
     Dosage: 150 MUG, QWK
     Route: 042
     Dates: start: 20130320, end: 20130614
  2. MIMPARA [Concomitant]
     Dosage: 30 MG, QD
     Route: 048
  3. MONTELUKAST [Concomitant]
     Dosage: 10 MG, QHS
     Route: 048
  4. IPRATROPIUM [Concomitant]
     Dosage: 2 PUFFS,AS NECESSARY
     Route: 045
  5. EPIPEN [Concomitant]
     Dosage: 300 MUG, AS NECESSARY
     Route: 030
  6. VITAMIN D                          /00107901/ [Concomitant]
     Route: 030
  7. ALFACALCIDOL [Concomitant]
     Dosage: 0.25 MUG, QD
     Route: 048
  8. MIRTAZAPINE [Concomitant]
     Dosage: 15 MG, QHS
     Route: 048
  9. MIDODRINE [Concomitant]
     Dosage: 10 MG, UNK
     Route: 048
  10. OSVAREN [Concomitant]
     Dosage: 435 MG, TID
     Route: 048
  11. SIMVASTATIN [Concomitant]
     Dosage: 40 MG, QHS
     Route: 048
  12. MULTIVITAMINS [Concomitant]
     Route: 048
  13. PARACETAMOL [Concomitant]
     Dosage: 1 G, AS NECESSARY
     Route: 048
  14. LOPERAMIDE [Concomitant]
     Indication: DIARRHOEA
     Dosage: 2 MG, AS NECESSARY
     Route: 048
  15. BRICANYL [Concomitant]
     Dosage: 2 PUFFS, AS NECESSARY
     Route: 045
  16. RANITIDINE [Concomitant]
     Dosage: 150 MG, BID
     Route: 048
  17. UNIPHYLLIN CONTINUS [Concomitant]
     Dosage: 200 MG, BID
     Route: 048
  18. SYMBICORT [Concomitant]
     Dosage: 2 PUFFS, BID
     Route: 045
  19. CETIRIZINE [Concomitant]
     Dosage: 10 MG, QD
     Route: 048
  20. LEVOTHYROXINE [Concomitant]
     Dosage: 100 MUG, QD
     Route: 048
  21. SALBUTAMOL [Concomitant]
     Dosage: 2 PUFFS, AS NECESSARY
     Route: 045

REACTIONS (5)
  - Chest pain [Unknown]
  - Condition aggravated [Unknown]
  - Dyspnoea [Unknown]
  - Aplasia pure red cell [Not Recovered/Not Resolved]
  - Drug effect decreased [Unknown]
